FAERS Safety Report 25997270 (Version 2)
Quarter: 2025Q4

REPORT INFORMATION
  Report Type: Spontaneous
  Country: US (occurrence: US)
  Receive Date: 20251104
  Receipt Date: 20251107
  Transmission Date: 20260118
  Serious: Yes (Other)
  Sender: Methapharma
  Company Number: US-METHAPHARM-2017-MET-000001

PATIENT
  Sex: Female

DRUGS (1)
  1. PROVOCHOLINE [Suspect]
     Active Substance: METHACHOLINE CHLORIDE
     Indication: Investigation
     Dosage: DOSAGE FORM IS PROVOCHOLINE POWDER FOR SOLUTION

REACTIONS (1)
  - Oxygen saturation decreased [Unknown]
